FAERS Safety Report 10637543 (Version 1)
Quarter: 2014Q4

REPORT INFORMATION
  Report Type: Spontaneous
  Country: SE (occurrence: SE)
  Receive Date: 20141208
  Receipt Date: 20141208
  Transmission Date: 20150529
  Serious: Yes (Other)
  Sender: FDA-Public Use
  Company Number: CHPA2014SE016019

PATIENT
  Age: 24 Year
  Sex: Female

DRUGS (1)
  1. SCOPODERM TTS [Suspect]
     Active Substance: SCOPOLAMINE
     Indication: MOTION SICKNESS
     Dosage: 1 DF, ONCE/SINGLE
     Route: 065
     Dates: start: 20141113, end: 20141113

REACTIONS (5)
  - Presyncope [Recovering/Resolving]
  - Blindness transient [Recovering/Resolving]
  - Dry mouth [Recovering/Resolving]
  - Chromaturia [Recovering/Resolving]
  - Dizziness [Recovering/Resolving]

NARRATIVE: CASE EVENT DATE: 20141114
